FAERS Safety Report 16497866 (Version 1)
Quarter: 2019Q2

REPORT INFORMATION
  Report Type: Spontaneous
  Country: RU (occurrence: RU)
  Receive Date: 20190628
  Receipt Date: 20190628
  Transmission Date: 20190711
  Serious: Yes (Other)
  Sender: FDA-Public Use
  Company Number: PHHY2019RU147078

PATIENT
  Age: 36 Year
  Sex: Male

DRUGS (6)
  1. BROXINAC [Concomitant]
     Indication: CONJUNCTIVITIS
     Dosage: 1 GTT, BID
     Route: 047
     Dates: start: 20190416, end: 20190417
  2. VITABACT [Concomitant]
     Active Substance: PICLOXYDINE DIHYDROCHLORIDE
     Dosage: 1 GTT, QID
     Route: 047
     Dates: start: 20190420
  3. OPHTALMOFERON [Concomitant]
     Indication: PRODUCT USED FOR UNKNOWN INDICATION
     Dosage: 1 GTT, 6QD
     Route: 047
     Dates: start: 20190416, end: 20190417
  4. ACYCLOVIR. [Concomitant]
     Active Substance: ACYCLOVIR
     Indication: CONJUNCTIVITIS
     Dosage: 1 DF, TID
     Route: 048
     Dates: start: 20190416, end: 20190417
  5. VITABACT [Concomitant]
     Active Substance: PICLOXYDINE DIHYDROCHLORIDE
     Indication: CONJUNCTIVITIS
     Dosage: 1 GTT, QID
     Route: 047
     Dates: start: 20190416, end: 20190417
  6. VIGAMOX [Suspect]
     Active Substance: MOXIFLOXACIN HYDROCHLORIDE
     Indication: CONJUNCTIVITIS
     Dosage: 1 GTT, TID
     Route: 047
     Dates: start: 20190416, end: 20190417

REACTIONS (11)
  - Conjunctivitis allergic [Recovered/Resolved]
  - Dermatitis bullous [Unknown]
  - Conjunctival hyperaemia [Unknown]
  - Conjunctival follicles [Unknown]
  - Conjunctival oedema [Unknown]
  - Adenoviral conjunctivitis [Recovered/Resolved]
  - Foreign body sensation in eyes [Unknown]
  - Corneal oedema [Unknown]
  - Corneal infiltrates [Unknown]
  - Visual impairment [Unknown]
  - Conjunctivitis [Recovered/Resolved]

NARRATIVE: CASE EVENT DATE: 20190417
